FAERS Safety Report 9900400 (Version 1)
Quarter: 2014Q1

REPORT INFORMATION
  Report Type: Report from Study
  Country: NL (occurrence: NL)
  Receive Date: 20140217
  Receipt Date: 20140217
  Transmission Date: 20141002
  Serious: Yes (Hospitalization)
  Sender: FDA-Public Use
  Company Number: NL-ROCHE-1348510

PATIENT
  Sex: Female

DRUGS (3)
  1. PEGASYS [Suspect]
     Indication: PRODUCT USED FOR UNKNOWN INDICATION
     Route: 058
  2. PEGASYS [Suspect]
     Dosage: IN OCT/2005, THE DOSE WAS REDUCED.
     Route: 058
  3. PEGASYS [Suspect]
     Dosage: IN OCT/2005, THE TREATMENT DOSE WAS REDUCED. THERAPY END DATE WAS NOV/2005.
     Route: 058

REACTIONS (10)
  - Headache [Recovered/Resolved]
  - Body temperature increased [Recovered/Resolved]
  - Chest discomfort [Unknown]
  - Palpitations [Unknown]
  - Abdominal pain upper [Unknown]
  - Major depression [Unknown]
  - Hypertension [Unknown]
  - Confusional state [Unknown]
  - Fatigue [Unknown]
  - Cardiac disorder [Recovered/Resolved]
